FAERS Safety Report 5500800-0 (Version None)
Quarter: 2007Q4

REPORT INFORMATION
  Report Type: 
  Country: None (occurrence: None)
  Receive Date: 20071029
  Receipt Date: 20071026
  Transmission Date: 20080405
  Serious: Yes (Other)
  Sender: FDA-Public Use
  Company Number: A0689971A

PATIENT
  Age: 76 Year
  Sex: Female

DRUGS (1)
  1. TUMS E-X TABLETS, SUGAR FREE ORANGE [Suspect]
     Indication: DRUG USE FOR UNKNOWN INDICATION

REACTIONS (2)
  - FAILURE OF IMPLANT [None]
  - PHARMACEUTICAL PRODUCT COMPLAINT [None]
